FAERS Safety Report 20519721 (Version 5)
Quarter: 2022Q3

REPORT INFORMATION
  Report Type: Spontaneous
  Country: JP (occurrence: JP)
  Receive Date: 20220225
  Receipt Date: 20220715
  Transmission Date: 20221027
  Serious: Yes (Other)
  Sender: FDA-Public Use
  Company Number: JP-GLAXOSMITHKLINE-JP2022JPN031642

PATIENT

DRUGS (50)
  1. SOTROVIMAB [Suspect]
     Active Substance: SOTROVIMAB
     Indication: COVID-19
     Dosage: 500 MG/100 ML/30 MIN
     Route: 042
     Dates: start: 20220213, end: 20220213
  2. GLIMEPIRIDE [Concomitant]
     Active Substance: GLIMEPIRIDE
     Indication: Diabetes mellitus
     Dosage: 2 MG, QD, AFTER BREAKFAST
     Route: 048
     Dates: end: 20220204
  3. GLIMEPIRIDE [Concomitant]
     Active Substance: GLIMEPIRIDE
     Dosage: 2 MG, QD AFTER BREAKFAST
     Route: 048
     Dates: start: 20220206, end: 20220210
  4. GLIMEPIRIDE [Concomitant]
     Active Substance: GLIMEPIRIDE
     Dosage: 2 MG, QD, AFTER BREAKFAST, 1 MG BID, AAFTER BREAKFAST + LUNCH
     Route: 048
     Dates: start: 20220211, end: 20220211
  5. GLIMEPIRIDE [Concomitant]
     Active Substance: GLIMEPIRIDE
     Dosage: 3 MG, QD, AFTER BREAKFAST
     Route: 048
     Dates: start: 20220212, end: 20220216
  6. GLIMEPIRIDE [Concomitant]
     Active Substance: GLIMEPIRIDE
     Dosage: 3 MG, QD, AFTER BREAKFAST
     Route: 048
     Dates: start: 20220217, end: 20220306
  7. GLIMEPIRIDE [Concomitant]
     Active Substance: GLIMEPIRIDE
     Dosage: 6 MG, QD, AFTER BREAKFAST
     Route: 048
     Dates: start: 20220307, end: 20220309
  8. GLIMEPIRIDE [Concomitant]
     Active Substance: GLIMEPIRIDE
     Dosage: 3 MG, QD, AFTER BREAKFAST
     Route: 048
     Dates: start: 20220310
  9. TRAZENTA TABLETS [Concomitant]
     Indication: Diabetes mellitus
     Dosage: 5 MG, QD, AFTER BREAKFAST
     Dates: end: 20220204
  10. TRAZENTA TABLETS [Concomitant]
     Dosage: 5 MG, QD, AFTER BREAKFAST
     Dates: start: 20220206, end: 20220216
  11. TRAZENTA TABLETS [Concomitant]
     Dosage: 5 MG, QD AFTER BREAKFAST
     Dates: start: 20220217, end: 20220306
  12. TRAZENTA TABLETS [Concomitant]
     Dosage: 10 MG, QD, AFTER BREAKFAST
     Dates: start: 20220307, end: 20220309
  13. TRAZENTA TABLETS [Concomitant]
     Dosage: 5 MG, QD
     Dates: start: 20220310
  14. PITAVASTATIN CALCIUM [Concomitant]
     Active Substance: PITAVASTATIN CALCIUM
     Indication: Hyperlipidaemia
     Dosage: 2 MG, QD, AFTER BREAKFAST
     Route: 048
     Dates: end: 20220204
  15. PITAVASTATIN CALCIUM [Concomitant]
     Active Substance: PITAVASTATIN CALCIUM
     Dosage: 2 MG, QD AFTER BREAKFAST
     Route: 048
     Dates: start: 20220206, end: 20220306
  16. PITAVASTATIN CALCIUM [Concomitant]
     Active Substance: PITAVASTATIN CALCIUM
     Dosage: 4 MG, QD, AFTER BREAKFAST
     Route: 048
     Dates: start: 20220307, end: 20220309
  17. PITAVASTATIN CALCIUM [Concomitant]
     Active Substance: PITAVASTATIN CALCIUM
     Dosage: 2 MG, QD AFTER BREAKFAST
     Route: 048
     Dates: start: 20220310
  18. PIOGLITAZONE HYDROCHLORIDE TABLETS [Concomitant]
     Indication: Diabetes mellitus
     Dosage: 7.5 MG, QD AFTER BREAKFAST
     Route: 048
     Dates: end: 20220204
  19. PIOGLITAZONE HYDROCHLORIDE TABLETS [Concomitant]
     Dosage: 7.5 MG, QD AFTER BREAKFAST
     Route: 048
     Dates: start: 20220206, end: 20220207
  20. PIOGLITAZONE HYDROCHLORIDE TABLETS [Concomitant]
     Dosage: 22.5 MG, QD, AFTER BREAKFAST
     Route: 048
     Dates: start: 20220208, end: 20220209
  21. PIOGLITAZONE HYDROCHLORIDE TABLETS [Concomitant]
     Dosage: 15 MG, QD, AFTER BREAKFAST
     Route: 048
     Dates: start: 20220210, end: 20220306
  22. PIOGLITAZONE HYDROCHLORIDE TABLETS [Concomitant]
     Dosage: 30 MG, QD, AFTER BREAKFAST
     Route: 048
     Dates: start: 20220307, end: 20220309
  23. PIOGLITAZONE HYDROCHLORIDE TABLETS [Concomitant]
     Dosage: 15 MG, QD, AFTER BREAKFAST
     Route: 048
     Dates: start: 20220310
  24. EZETIMIBE OD [Concomitant]
     Indication: Hyperlipidaemia
     Dosage: 10 MG, QD, AFTER BREAKFAST
     Route: 048
     Dates: end: 20220204
  25. EZETIMIBE OD [Concomitant]
     Dosage: 10 MG, QD, AFTER BREAKFAST
     Route: 048
     Dates: start: 20220206, end: 20220306
  26. EZETIMIBE OD [Concomitant]
     Dosage: 20 MG, QD, AFTER BREAKFAST
     Route: 048
     Dates: start: 20220307, end: 20220309
  27. EZETIMIBE OD [Concomitant]
     Dosage: 10 MG, QD
     Route: 048
     Dates: start: 20220310
  28. XALATAN [Concomitant]
     Active Substance: LATANOPROST
     Indication: Glaucoma
     Dosage: 2.5 ML, QD, RIGHT EYE
     Dates: start: 20220205, end: 20220205
  29. INSULIN ASPART (GENETICAL RECOMBINATION) [Concomitant]
     Indication: Diabetes mellitus
     Dosage: 1 KIT, SLIDING SCHALE
     Dates: start: 20220206, end: 20220206
  30. METGLUCO TABLETS [Concomitant]
     Indication: Diabetes mellitus
     Dosage: 500 MG, BID, AFTER BREAKFAST + DINNER
     Route: 048
     Dates: start: 20220206, end: 20220306
  31. METGLUCO TABLETS [Concomitant]
     Dosage: 1000 MG, BID, AFTER BREAKFAST + DINNER
     Route: 048
     Dates: start: 20220307, end: 20220309
  32. METGLUCO TABLETS [Concomitant]
     Dosage: 500 MG, BID, AFTER BREAKFAST + DINNER
     Route: 048
     Dates: start: 20220310
  33. SENNOSIDES [Concomitant]
     Active Substance: SENNOSIDES
     Indication: Constipation
     Dosage: 24 MG AT CONSTIPATION BEFORE SLEEP UP TO ONCE DAILY
     Dates: start: 20220211, end: 20220211
  34. SENNOSIDES [Concomitant]
     Active Substance: SENNOSIDES
     Dosage: 24 MG AT CONSTIPATION BEFORE SLEEP UP TO ONCE DAILY
     Dates: start: 20220216, end: 20220216
  35. SENNOSIDES [Concomitant]
     Active Substance: SENNOSIDES
     Dosage: 24 MG AT CONSTIPATION BEFORE SLEEP UP TO ONCE DAILY
     Dates: start: 20220223, end: 20220223
  36. SENNOSIDES [Concomitant]
     Active Substance: SENNOSIDES
     Dosage: 24 MG AT CONSTIPATION BEFORE SLEEP UP TO ONCE DAILY
     Dates: start: 20220224, end: 20220224
  37. SENNOSIDES [Concomitant]
     Active Substance: SENNOSIDES
     Dosage: 24 MG AT CONSTIPATION BEFORE SLEEP UP TO ONCE DAILY
     Dates: start: 20220228, end: 20220228
  38. SENNOSIDES [Concomitant]
     Active Substance: SENNOSIDES
     Dosage: 24 MG AT CONSTIPATION BEFORE SLEEP UP TO ONCE DAILY
     Dates: start: 20220303, end: 20220303
  39. SENNOSIDES [Concomitant]
     Active Substance: SENNOSIDES
     Dosage: 24 MG AT CONSTIPATION BEFORE SLEEP UP TO ONCE DAILY
     Dates: start: 20220305, end: 20220305
  40. SENNOSIDES [Concomitant]
     Active Substance: SENNOSIDES
     Dosage: UNK
  41. CALONAL [Concomitant]
     Active Substance: ACETAMINOPHEN
     Indication: Pyrexia
     Dosage: 400 MG , AT HIGH DEGREE, SEVERE PAIN, UP TO 3 TIMES DAILY WHEN ABNOMALITY
     Dates: start: 20220211, end: 20220213
  42. CALONAL [Concomitant]
     Active Substance: ACETAMINOPHEN
     Indication: Pain
     Dosage: 400 MG , AT HIGH DEGREE, SEVERE PAIN, UP TO 3 TIMES DAILY WHEN ABNOMALITY
     Dates: start: 20220224, end: 20220224
  43. CALONAL [Concomitant]
     Active Substance: ACETAMINOPHEN
     Dosage: 400 MG , AT HIGH DEGREE, SEVERE PAIN, UP TO 3 TIMES DAILY WHEN ABNOMALITY
     Dates: start: 20220226, end: 20220226
  44. LUNESTA TABLETS [Concomitant]
     Indication: Initial insomnia
     Dosage: 1 MG, AT DIFFICULTY OF SLEEPING, BEFORE BED, WHEN ABNORMALITY
     Route: 048
     Dates: start: 20220218, end: 20220224
  45. LUNESTA TABLETS [Concomitant]
     Indication: Insomnia
     Dosage: 1 MG, QD BEFORE BED
     Route: 048
     Dates: start: 20220225, end: 20220306
  46. LUNESTA TABLETS [Concomitant]
     Dosage: 2 MG, QD, BEFORE BED
     Route: 048
     Dates: start: 20220307, end: 20220309
  47. LUNESTA TABLETS [Concomitant]
     Dosage: 1 MG, QD BEFORE BED
     Route: 048
     Dates: start: 20220310
  48. POVIDONE IODINE GARGLE [Concomitant]
     Indication: Oropharyngeal pain
     Dosage: 50 ML PER SEVERAL TIME A DAY
     Dates: start: 20220226, end: 20220226
  49. DEQUALINIUM CHLORIDE [Concomitant]
     Active Substance: DEQUALINIUM CHLORIDE
     Indication: Oropharyngeal pain
     Dosage: 20 TABLETS PER SEVERAL TIMES A DAY
     Dates: start: 20220301, end: 20220301
  50. VOGLIBOSE TABLET [Concomitant]
     Indication: Diabetes mellitus
     Dosage: 0.2 MG, TID, IMMEDIATELY BEFORE EACH MEAL
     Route: 048
     Dates: start: 20220302

REACTIONS (1)
  - Deafness unilateral [Recovering/Resolving]

NARRATIVE: CASE EVENT DATE: 20220201
